FAERS Safety Report 7290156-8 (Version None)
Quarter: 2011Q1

REPORT INFORMATION
  Report Type: 
  Country: None (occurrence: None)
  Receive Date: 20110214
  Receipt Date: 20110131
  Transmission Date: 20110831
  Serious: Yes (Other)
  Sender: FDA-Public Use
  Company Number: PHHY2011US03374

PATIENT
  Sex: Female
  Weight: 53.515 kg

DRUGS (11)
  1. GABAPENTIN [Concomitant]
  2. OSTEO BI-FLEX [Concomitant]
  3. OXYCODONE [Concomitant]
  4. BACLOFEN [Concomitant]
     Indication: MUSCLE SPASTICITY
     Dosage: 20 MG, TID
     Route: 048
  5. PROZAC [Concomitant]
  6. GILENYA [Suspect]
     Indication: RELAPSING-REMITTING MULTIPLE SCLEROSIS
     Dosage: 0.5 MG, QD
     Route: 048
     Dates: start: 20110107
  7. MULTIVITAMIN [Concomitant]
  8. NEURONTIN [Concomitant]
     Indication: NEURALGIA
     Dosage: 800 MG, TID
     Route: 048
  9. TOPAMAX [Concomitant]
     Indication: MIGRAINE
     Dosage: 50 MG, BID
     Route: 048
  10. FISH OIL [Concomitant]
  11. OXYCONTIN [Concomitant]
     Indication: NEURALGIA
     Dosage: 20 MG, BID

REACTIONS (6)
  - CHILLS [None]
  - DIARRHOEA [None]
  - MIGRAINE [None]
  - LETHARGY [None]
  - HEADACHE [None]
  - VOMITING [None]
